FAERS Safety Report 12598386 (Version 1)
Quarter: 2016Q3

REPORT INFORMATION
  Report Type: Spontaneous
  Country: JP (occurrence: JP)
  Receive Date: 20160726
  Receipt Date: 20160726
  Transmission Date: 20161109
  Serious: Yes (Hospitalization)
  Sender: FDA-Public Use
  Company Number: JP-GILEAD-2016-0222696

PATIENT
  Age: 59 Year
  Sex: Male

DRUGS (4)
  1. HARVONI [Suspect]
     Active Substance: LEDIPASVIR\SOFOSBUVIR
     Indication: HEPATITIS C
     Dosage: 1 DF, QD
     Route: 048
     Dates: start: 20160609
  2. FEBURIC [Concomitant]
     Active Substance: FEBUXOSTAT
     Route: 048
  3. ELIQUIS [Concomitant]
     Active Substance: APIXABAN
  4. BAYASPIRIN [Concomitant]
     Active Substance: ASPIRIN

REACTIONS (1)
  - Renal impairment [Unknown]
